FAERS Safety Report 11336325 (Version 1)
Quarter: 2015Q3

REPORT INFORMATION
  Report Type: Spontaneous
  Country: US (occurrence: None)
  Receive Date: 20150731
  Receipt Date: 20150731
  Transmission Date: 20151125
  Serious: Yes (Hospitalization)
  Sender: FDA-Public Use
  Company Number: None

PATIENT
  Age: 87 Year
  Sex: Male
  Weight: 96.7 kg

DRUGS (1)
  1. SILDENAFIL. [Suspect]
     Active Substance: SILDENAFIL
     Indication: ERECTILE DYSFUNCTION
     Dosage: 50 MG ?OTHER?PO
     Route: 048
     Dates: start: 20070919

REACTIONS (3)
  - Hypotension [None]
  - Condition aggravated [None]
  - Dizziness [None]

NARRATIVE: CASE EVENT DATE: 20120508
